FAERS Safety Report 17808211 (Version 2)
Quarter: 2021Q1

REPORT INFORMATION
  Report Type: Spontaneous
  Country: PT (occurrence: PT)
  Receive Date: 20200520
  Receipt Date: 20210330
  Transmission Date: 20210419
  Serious: Yes (Hospitalization, Disabling, Other)
  Sender: FDA-Public Use
  Company Number: PT-MYLANLABS-2020M1048924

PATIENT
  Age: 67 Year
  Sex: Female

DRUGS (3)
  1. SIMVASTATIN. [Suspect]
     Active Substance: SIMVASTATIN
     Indication: DYSLIPIDAEMIA
     Dosage: UNK
     Route: 065
  2. CLARITHROMYCIN. [Interacting]
     Active Substance: CLARITHROMYCIN
     Indication: MYCOBACTERIUM CHELONAE INFECTION
     Dosage: UNK
     Route: 065
     Dates: start: 201806
  3. CIPROFLOXACIN. [Interacting]
     Active Substance: CIPROFLOXACIN
     Indication: MYCOBACTERIUM CHELONAE INFECTION
     Dosage: UNK
     Route: 065
     Dates: start: 201806

REACTIONS (10)
  - Muscle strength abnormal [Recovered/Resolved]
  - Hepatocellular injury [Unknown]
  - Quadriparesis [Recovered/Resolved]
  - Drug interaction [Unknown]
  - Oedema peripheral [Recovered/Resolved]
  - Acute kidney injury [Unknown]
  - Rhabdomyolysis [Recovered/Resolved]
  - Myalgia [Recovered/Resolved]
  - Nausea [Recovered/Resolved]
  - Diarrhoea [Recovered/Resolved]
